FAERS Safety Report 20858930 (Version 1)
Quarter: 2022Q2

REPORT INFORMATION
  Report Type: Spontaneous
  Country: SE (occurrence: SE)
  Receive Date: 20220522
  Receipt Date: 20220522
  Transmission Date: 20220721
  Serious: Yes (Death, Other)
  Sender: FDA-Public Use
  Company Number: None

PATIENT
  Age: 70 Year
  Sex: Male

DRUGS (2)
  1. YERVOY [Suspect]
     Active Substance: IPILIMUMAB
     Indication: Renal cancer metastatic
     Dates: start: 20201026
  2. NIVOLUMAB [Suspect]
     Active Substance: NIVOLUMAB
     Indication: Renal cancer metastatic
     Dates: start: 20201026

REACTIONS (4)
  - Neuropathy peripheral [Unknown]
  - Respiratory failure [Fatal]
  - Rhabdomyolysis [Unknown]
  - Myopathy [Fatal]

NARRATIVE: CASE EVENT DATE: 20200101
